FAERS Safety Report 4582550-0 (Version None)
Quarter: 2005Q1

REPORT INFORMATION
  Report Type: 
  Country: None (occurrence: None)
  Receive Date: 20050215
  Receipt Date: 20050203
  Transmission Date: 20050727
  Serious: Yes (Other)
  Sender: FDA-Public Use
  Company Number: US-JNJFOC-20041204308

PATIENT
  Sex: Female
  Weight: 49.44 kg

DRUGS (1)
  1. ULTRACET [Suspect]
     Indication: BACK PAIN
     Dosage: AS NEEDED
     Route: 049

REACTIONS (3)
  - CONVULSION [None]
  - SKIN GRAFT [None]
  - THERMAL BURN [None]
